FAERS Safety Report 20963092 (Version 1)
Quarter: 2022Q2

REPORT INFORMATION
  Report Type: Spontaneous
  Country: JP (occurrence: JP)
  Receive Date: 20220615
  Receipt Date: 20220615
  Transmission Date: 20220721
  Serious: Yes (Other)
  Sender: FDA-Public Use
  Company Number: JP-PFIZER INC-202200825394

PATIENT

DRUGS (1)
  1. EFFEXOR [Suspect]
     Active Substance: VENLAFAXINE HYDROCHLORIDE
     Dosage: UNK

REACTIONS (10)
  - Aptyalism [Unknown]
  - Dysphagia [Unknown]
  - Productive cough [Unknown]
  - Feeding disorder [Unknown]
  - Blood pressure decreased [Unknown]
  - Blood pressure increased [Unknown]
  - Feeling abnormal [Unknown]
  - Headache [Unknown]
  - Liver function test increased [Unknown]
  - Thirst [Unknown]
